FAERS Safety Report 9266284 (Version 1)
Quarter: 2013Q2

REPORT INFORMATION
  Report Type: Spontaneous
  Country: US (occurrence: US)
  Receive Date: 20130502
  Receipt Date: 20130502
  Transmission Date: 20140414
  Serious: No
  Sender: FDA-Public Use
  Company Number: US-JNJFOC-20130410703

PATIENT
  Age: 54 Year
  Sex: Male
  Weight: 56.7 kg

DRUGS (4)
  1. DURAGESIC [Suspect]
     Indication: PAIN
     Route: 062
     Dates: start: 20130326
  2. DURAGESIC [Suspect]
     Indication: PAIN
     Route: 062
     Dates: start: 201302, end: 20130326
  3. MORPHINE [Concomitant]
     Indication: BREAKTHROUGH PAIN
     Dosage: AS NECESSARY
     Route: 048
     Dates: end: 20130326
  4. MORPHINE [Concomitant]
     Indication: BREAKTHROUGH PAIN
     Dosage: AS NEEDED
     Route: 048
     Dates: start: 20130326

REACTIONS (4)
  - Drug dose omission [Recovered/Resolved]
  - Pain [Recovered/Resolved]
  - Breakthrough pain [Not Recovered/Not Resolved]
  - Drug ineffective [Unknown]
